FAERS Safety Report 8225795-0 (Version None)
Quarter: 2012Q1

REPORT INFORMATION
  Report Type: 
  Country: None (occurrence: None)
  Receive Date: 20120321
  Receipt Date: 20120319
  Transmission Date: 20120608
  Serious: Yes (Other)
  Sender: FDA-Public Use
  Company Number: VE-PFIZER INC-2011072040

PATIENT
  Age: 77 Year
  Sex: Female

DRUGS (2)
  1. LIPITOR [Suspect]
     Indication: HYPERCHOLESTEROLAEMIA
     Dosage: 40 MG, 1X/DAY
     Route: 048
     Dates: start: 20090101
  2. CALCIUM CITRATE TETRAHYDRATE [Concomitant]
     Dosage: 950 MG, 1X/DAY
     Route: 048

REACTIONS (1)
  - JOINT ARTHROPLASTY [None]
